FAERS Safety Report 10203008 (Version 2)
Quarter: 2014Q3

REPORT INFORMATION
  Report Type: Spontaneous
  Country: IT (occurrence: IT)
  Receive Date: 20140528
  Receipt Date: 20140922
  Transmission Date: 20150326
  Serious: Yes (Hospitalization)
  Sender: FDA-Public Use
  Company Number: IT-PFIZER INC-2014142894

PATIENT
  Age: 64 Year
  Sex: Female
  Weight: 82 kg

DRUGS (1)
  1. SUTENT [Suspect]
     Active Substance: SUNITINIB MALATE
     Indication: RENAL CANCER
     Dosage: 50 MG, DAILY
     Route: 048
     Dates: start: 20130724, end: 20130830

REACTIONS (10)
  - Vomiting [Unknown]
  - Depression [Recovering/Resolving]
  - Tremor [Recovering/Resolving]
  - Nausea [Unknown]
  - Asthenia [Unknown]
  - Platelet count decreased [Recovering/Resolving]
  - Haematoma [Unknown]
  - Palpitations [Unknown]
  - Hypertension [Recovering/Resolving]
  - Decreased appetite [Unknown]

NARRATIVE: CASE EVENT DATE: 20130805
